FAERS Safety Report 7427310-8 (Version None)
Quarter: 2011Q2

REPORT INFORMATION
  Report Type: 
  Country: None (occurrence: None)
  Receive Date: 20110420
  Receipt Date: 20110416
  Transmission Date: 20111010
  Serious: No
  Sender: FDA-Public Use
  Company Number: US-PFIZER INC-2011083703

PATIENT
  Sex: Female
  Weight: 77 kg

DRUGS (2)
  1. CELEBREX [Suspect]
     Indication: ARTHRITIS
     Dosage: 200 MG, DAILY
     Route: 048
     Dates: start: 20110413, end: 20110415
  2. FISH OIL [Concomitant]
     Dosage: UNK

REACTIONS (1)
  - PRURITUS [None]
